FAERS Safety Report 21574573 (Version 1)
Quarter: 2022Q4

REPORT INFORMATION
  Report Type: Spontaneous
  Country: US (occurrence: US)
  Receive Date: 20221109
  Receipt Date: 20221109
  Transmission Date: 20230113
  Serious: Yes (Hospitalization)
  Sender: FDA-Public Use
  Company Number: US-BRISTOL-MYERS SQUIBB COMPANY-2022-133826

PATIENT
  Age: 63 Year
  Sex: Male
  Weight: 118.38 kg

DRUGS (1)
  1. REVLIMID [Suspect]
     Active Substance: LENALIDOMIDE
     Indication: Plasma cell myeloma
     Dosage: 21 DAY ON 7 DAY OFF
     Route: 048
     Dates: start: 20220902

REACTIONS (1)
  - Hospitalisation [Recovered/Resolved]
